FAERS Safety Report 7917588 (Version 5)
Quarter: 2015Q2

REPORT INFORMATION
  Report Type: Spontaneous
  Country: US (occurrence: US)
  Receive Date: 20110428
  Receipt Date: 20150521
  Transmission Date: 20150821
  Serious: Yes (Hospitalization, Other)
  Sender: FDA-Public Use
  Company Number: US-BAYER-2011-035951

PATIENT
  Age: 51 Year
  Sex: Female
  Weight: 67 kg

DRUGS (6)
  1. YAZ [Suspect]
     Active Substance: DROSPIRENONE\ETHINYL ESTRADIOL
     Indication: PREMENSTRUAL SYNDROME
     Dosage: UNK
     Dates: start: 200703, end: 200904
  2. THYROXIN [Concomitant]
     Active Substance: LEVOTHYROXINE
  3. MOTRIN [Concomitant]
     Active Substance: IBUPROFEN
     Indication: INFLAMMATION
     Dosage: 800 MG, TID
  4. ALEVE [Concomitant]
     Active Substance: NAPROXEN SODIUM
     Dosage: UNK
     Dates: start: 2005
  5. LORATADINE. [Concomitant]
     Active Substance: LORATADINE
     Indication: HYPERSENSITIVITY
     Dosage: 10 MG, PRN
     Route: 048
  6. CYTOMEL [Concomitant]
     Active Substance: LIOTHYRONINE SODIUM
     Indication: HYPOTHYROIDISM
     Dosage: UNK
     Dates: start: 2007

REACTIONS (9)
  - Fear [None]
  - Psychological trauma [None]
  - Injury [None]
  - Emotional distress [None]
  - Pain [None]
  - Anhedonia [None]
  - Cerebrovascular accident [None]
  - Embolic stroke [None]
  - Anxiety [None]

NARRATIVE: CASE EVENT DATE: 2009
